FAERS Safety Report 12840024 (Version 1)
Quarter: 2016Q4

REPORT INFORMATION
  Report Type: Spontaneous
  Country: US (occurrence: US)
  Receive Date: 20161012
  Receipt Date: 20161012
  Transmission Date: 20170207
  Serious: No
  Sender: FDA-Public Use
  Company Number: US-TEVA-701957USA

PATIENT
  Age: 68 Year
  Sex: Female

DRUGS (13)
  1. COPAXONE [Suspect]
     Active Substance: GLATIRAMER ACETATE
     Indication: MULTIPLE SCLEROSIS
     Dosage: 17.1429 MILLIGRAM DAILY;
     Route: 058
     Dates: start: 20121012
  2. MINERALS NOS [Concomitant]
     Active Substance: MINERALS
  3. VITAMIN D [Concomitant]
     Active Substance: CHOLECALCIFEROL
  4. OMEPRAZOLE. [Concomitant]
     Active Substance: OMEPRAZOLE
  5. GABAPENTIN. [Concomitant]
     Active Substance: GABAPENTIN
  6. ASPIRIN. [Concomitant]
     Active Substance: ASPIRIN
  7. SALICYLATES NOS [Concomitant]
     Active Substance: UNSPECIFIED INGREDIENT
  8. OXYBUTYNIN [Concomitant]
     Active Substance: OXYBUTYNIN
  9. DULOXETINE. [Concomitant]
     Active Substance: DULOXETINE
  10. TRAMADOL. [Concomitant]
     Active Substance: TRAMADOL
  11. GRAPE SEED EXTRACT [Concomitant]
     Active Substance: GRAPE SEED EXTRACT
  12. CALCIUM [Concomitant]
     Active Substance: CALCIUM
  13. TIZANIDINE. [Concomitant]
     Active Substance: TIZANIDINE

REACTIONS (1)
  - Fall [Unknown]

NARRATIVE: CASE EVENT DATE: 201609
